FAERS Safety Report 14539493 (Version 3)
Quarter: 2018Q2

REPORT INFORMATION
  Report Type: Spontaneous
  Country: RU (occurrence: RU)
  Receive Date: 20180216
  Receipt Date: 20180403
  Transmission Date: 20180711
  Serious: Yes (Other)
  Sender: FDA-Public Use
  Company Number: PHHY2018RU024097

PATIENT
  Sex: Female

DRUGS (1)
  1. NEVANAC [Suspect]
     Active Substance: NEPAFENAC
     Indication: POSTOPERATIVE CARE
     Dosage: 1 GTT, TID
     Route: 047

REACTIONS (5)
  - Eyelid oedema [Recovered/Resolved]
  - Hypersensitivity [Recovered/Resolved]
  - Tongue oedema [Recovered/Resolved]
  - Dyspnoea [Recovered/Resolved]
  - Laryngeal oedema [Recovered/Resolved]
